FAERS Safety Report 17756711 (Version 2)
Quarter: 2020Q3

REPORT INFORMATION
  Report Type: Report from Study
  Country: US (occurrence: US)
  Receive Date: 20200507
  Receipt Date: 20200924
  Transmission Date: 20201102
  Serious: Yes (Other)
  Sender: FDA-Public Use
  Company Number: US-VERASTEM-2020-00077

PATIENT

DRUGS (1)
  1. IPI?145 [Suspect]
     Active Substance: DUVELISIB
     Indication: ANGIOIMMUNOBLASTIC T-CELL LYMPHOMA
     Dosage: 75 MG, BID
     Route: 048
     Dates: start: 20200103

REACTIONS (2)
  - Post transplant lymphoproliferative disorder [Not Recovered/Not Resolved]
  - Skin lesion [Not Recovered/Not Resolved]
